FAERS Safety Report 18063812 (Version 1)
Quarter: 2020Q3

REPORT INFORMATION
  Report Type: Spontaneous
  Country: US (occurrence: US)
  Receive Date: 20200724
  Receipt Date: 20200724
  Transmission Date: 20201103
  Serious: No
  Sender: FDA-Public Use
  Company Number: US-KAMADA LIMITED-2019US010694

PATIENT

DRUGS (1)
  1. GLASSIA [Suspect]
     Active Substance: .ALPHA.1-PROTEINASE INHIBITOR HUMAN
     Indication: PRODUCT USED FOR UNKNOWN INDICATION
     Dosage: UNK (INFUSION WAS STOPPED AT 92% INFUSED PRODUCT)
     Route: 042
     Dates: start: 20191016

REACTIONS (1)
  - Hypotension [Recovered/Resolved]

NARRATIVE: CASE EVENT DATE: 20191016
